FAERS Safety Report 6386109-4 (Version None)
Quarter: 2009Q4

REPORT INFORMATION
  Report Type: 
  Country: None (occurrence: None)
  Receive Date: 20091002
  Receipt Date: 20081227
  Transmission Date: 20100525
  Serious: No
  Sender: FDA-Public Use
  Company Number: US-ASTRAZENECA-2008UW28798

PATIENT
  Age: 66 Year
  Sex: Female

DRUGS (1)
  1. ARIMIDEX [Suspect]
     Dosage: 1 MG
     Route: 048

REACTIONS (3)
  - ILL-DEFINED DISORDER [None]
  - NAUSEA [None]
  - WEIGHT DECREASED [None]
